FAERS Safety Report 10213845 (Version 1)
Quarter: 2014Q2

REPORT INFORMATION
  Report Type: Spontaneous
  Country: JP (occurrence: None)
  Receive Date: 20140529
  Receipt Date: 20140529
  Transmission Date: 20141212
  Serious: Yes (Other)
  Sender: FDA-Public Use
  Company Number: E7389-02795-SPO-JP

PATIENT
  Age: 51 Year
  Sex: Female

DRUGS (1)
  1. HALAVEN [Suspect]
     Indication: BREAST CANCER RECURRENT
     Dosage: INTERMITTANT IV. INFUSION.
     Route: 042
     Dates: start: 20120413, end: 20120528

REACTIONS (6)
  - Neutropenia [None]
  - Leukopenia [None]
  - Lymphopenia [None]
  - Erythema infectiosum [None]
  - Hepatic failure [None]
  - Haematotoxicity [None]
